FAERS Safety Report 9982191 (Version 1)
Quarter: 2014Q1

REPORT INFORMATION
  Report Type: Spontaneous
  Country: US (occurrence: None)
  Receive Date: 20140127
  Receipt Date: 20140127
  Transmission Date: 20141002
  Serious: Yes (Hospitalization)
  Sender: FDA-Public Use
  Company Number: 1230270

PATIENT
  Age: 82 Year
  Sex: Male
  Weight: 75.66 kg

DRUGS (6)
  1. RITUXAN (RITUXIMAB) [Suspect]
     Indication: LYMPHOMA
     Dosage: 698 UNIT NOT REPORTED, 1 IN 21 D
     Route: 042
     Dates: start: 20130326
  2. CYCLOPHOSPHAMIDE [Concomitant]
  3. PREDNISONE [Concomitant]
  4. VINCRISTINE [Concomitant]
  5. DOXORUBICIN (DOXORUBICIN/DOXORUBICIN HYDROCHLORIDE, DOXORUBICIN) [Concomitant]
  6. SAHA (VORINOSTAT) [Concomitant]

REACTIONS (1)
  - Myocardial infarction [None]
